FAERS Safety Report 8120192-0 (Version None)
Quarter: 2012Q1

REPORT INFORMATION
  Report Type: 
  Country: None (occurrence: None)
  Receive Date: 20120207
  Receipt Date: 20120130
  Transmission Date: 20120608
  Serious: Yes (Death, Hospitalization)
  Sender: FDA-Public Use
  Company Number: US-BAYER-2011-042064

PATIENT
  Age: 29 Year
  Sex: Female
  Weight: 143.31 kg

DRUGS (7)
  1. LORTAB [Concomitant]
     Indication: PAIN
     Dosage: UNK UNK, PRN
     Route: 048
     Dates: start: 20060102
  2. IBUPROFEN [Concomitant]
     Route: 048
  3. CALCIUM CARBONATE [Concomitant]
     Route: 048
  4. DAYQUIL [Concomitant]
     Route: 048
  5. SYNTHROID [Concomitant]
     Indication: HYPOTHYROIDISM
     Dosage: UNK
     Route: 048
     Dates: start: 20050908, end: 20060101
  6. YASMIN [Suspect]
     Indication: PREMENSTRUAL SYNDROME
     Dosage: UNK
     Dates: start: 20040101, end: 20060106
  7. ZICAM [Concomitant]
     Route: 048

REACTIONS (12)
  - DIZZINESS [None]
  - BRAIN OEDEMA [None]
  - CONVULSION [None]
  - LOSS OF CONSCIOUSNESS [None]
  - PULMONARY EMBOLISM [None]
  - CHEST DISCOMFORT [None]
  - DEEP VEIN THROMBOSIS [None]
  - DYSPNOEA [None]
  - PAIN IN EXTREMITY [None]
  - TOXIC ENCEPHALOPATHY [None]
  - HYPOXIC-ISCHAEMIC ENCEPHALOPATHY [None]
  - CENTRAL NERVOUS SYSTEM LESION [None]
